FAERS Safety Report 11800586 (Version 1)
Quarter: 2015Q4

REPORT INFORMATION
  Report Type: Report from Study
  Country: AT (occurrence: AT)
  Receive Date: 20151204
  Receipt Date: 20151204
  Transmission Date: 20160305
  Serious: Yes (Death, Hospitalization)
  Sender: FDA-Public Use
  Company Number: AT-AMGEN-KDC402958

PATIENT
  Age: 72 Year
  Sex: Female
  Weight: 88 kg

DRUGS (16)
  1. FURON [Concomitant]
     Active Substance: FUROSEMIDE
     Dosage: 40 MG, UNK
  2. CARVEDILOL. [Concomitant]
     Active Substance: CARVEDILOL
     Dosage: 12.5 MG, UNK
  3. DEFLAMAT [Concomitant]
     Active Substance: DICLOFENAC SODIUM
     Dosage: 75 MG, UNK
  4. VERAPAMIL HYDROCHLORIDE. [Concomitant]
     Active Substance: VERAPAMIL HYDROCHLORIDE
     Dosage: 80 MG, UNK
  5. DENOSUMAB [Suspect]
     Active Substance: DENOSUMAB
     Indication: BONE DENSITY DECREASED
     Dosage: UNK, Q6MO
     Route: 058
     Dates: start: 20090714, end: 20100118
  6. SERTRALINE [Concomitant]
     Active Substance: SERTRALINE HYDROCHLORIDE
     Dosage: 50 MG, UNK
  7. FOSINOPRIL [Concomitant]
     Active Substance: FOSINOPRIL
  8. TRAMADOL HYDROCHLORIDE. [Concomitant]
     Active Substance: TRAMADOL HYDROCHLORIDE
     Dosage: 100 MG, UNK
  9. DIOSMIN [Concomitant]
     Active Substance: DIOSMIN
     Dosage: 500 MG, UNK
  10. THROMBO ASS [Concomitant]
     Active Substance: ASPIRIN
     Dosage: 100 MG, UNK
  11. ISOSORBIDE MONONITRATE. [Concomitant]
     Active Substance: ISOSORBIDE MONONITRATE
     Dosage: 20 MG, UNK
  12. MOVALIS [Concomitant]
     Active Substance: MELOXICAM
     Dosage: 7.5 MG, UNK
  13. ANASTROZOLE. [Concomitant]
     Active Substance: ANASTROZOLE
     Dosage: 1 MG, UNK
     Dates: start: 20090702
  14. PANTOPRAZOLE [Concomitant]
     Active Substance: PANTOPRAZOLE SODIUM
     Dosage: 20 MG, UNK
  15. THYREX [Concomitant]
     Active Substance: LEVOTHYROXINE SODIUM
  16. HYDROCHLOROTHIAZIDE. [Concomitant]
     Active Substance: HYDROCHLOROTHIAZIDE

REACTIONS (4)
  - Cardiac failure [Fatal]
  - Sepsis [Fatal]
  - Renal failure [Fatal]
  - Pneumonia [Fatal]

NARRATIVE: CASE EVENT DATE: 20100318
